FAERS Safety Report 22205144 (Version 1)
Quarter: 2023Q2

REPORT INFORMATION
  Report Type: Spontaneous
  Country: US (occurrence: US)
  Receive Date: 20230413
  Receipt Date: 20230413
  Transmission Date: 20230722
  Serious: Yes (Hospitalization)
  Sender: FDA-Public Use
  Company Number: US-JNJFOC-20191245793

PATIENT
  Age: 25 Year
  Sex: Female

DRUGS (3)
  1. IMODIUM A-D [Suspect]
     Active Substance: LOPERAMIDE HYDROCHLORIDE
     Indication: Drug withdrawal maintenance therapy
     Route: 065
  2. IBUPROFEN [Concomitant]
     Active Substance: IBUPROFEN
     Indication: Pain
     Route: 065
  3. OXYCODONE [Concomitant]
     Active Substance: OXYCODONE
     Indication: Pain
     Route: 065

REACTIONS (8)
  - Syncope [Unknown]
  - Suicidal ideation [Unknown]
  - Bundle branch block [Unknown]
  - Depression [Unknown]
  - Electrocardiogram QT prolonged [Recovered/Resolved]
  - Toxicity to various agents [Unknown]
  - Nausea [Unknown]
  - Intentional product misuse [Unknown]
